FAERS Safety Report 7278931-7 (Version None)
Quarter: 2011Q1

REPORT INFORMATION
  Report Type: 
  Country: None (occurrence: None)
  Receive Date: 20110207
  Receipt Date: 20110124
  Transmission Date: 20110831
  Serious: Yes (Disabling)
  Sender: FDA-Public Use
  Company Number: PHHY2011US05660

PATIENT
  Sex: Female

DRUGS (3)
  1. DIOVAN HCT [Suspect]
     Dosage: UNK
  2. NORVASC [Concomitant]
  3. DIOVAN HCT [Suspect]
     Dosage: UNK

REACTIONS (5)
  - TACHYCARDIA [None]
  - HEADACHE [None]
  - HYPERSENSITIVITY [None]
  - ACCIDENT AT WORK [None]
  - BLOOD PRESSURE DECREASED [None]
